FAERS Safety Report 10653758 (Version 1)
Quarter: 2014Q4

REPORT INFORMATION
  Report Type: Spontaneous
  Country: US (occurrence: None)
  Receive Date: 20141212
  Receipt Date: 20141212
  Transmission Date: 20150529
  Serious: Yes (Other)
  Sender: FDA-Public Use
  Company Number: None

PATIENT
  Age: 63 Year
  Sex: Female
  Weight: 65.32 kg

DRUGS (5)
  1. HYDRALAZINE [Suspect]
     Active Substance: HYDRALAZINE HYDROCHLORIDE
     Indication: HYPERTENSION
     Dosage: 50 MG, 1-PILL 3-TIMES A DAY, BY MOUTH
     Route: 048
     Dates: start: 20141120, end: 20141121
  2. TRADJENTA [Concomitant]
     Active Substance: LINAGLIPTIN
  3. VERAPAMIL [Concomitant]
     Active Substance: VERAPAMIL HYDROCHLORIDE
  4. GLIPIZIDE. [Concomitant]
     Active Substance: GLIPIZIDE
  5. CLONDINE [Concomitant]

REACTIONS (5)
  - Blood pressure increased [None]
  - Ocular hyperaemia [None]
  - Hypoaesthesia oral [None]
  - Headache [None]
  - Pruritus [None]

NARRATIVE: CASE EVENT DATE: 20141119
